FAERS Safety Report 5421118-0 (Version None)
Quarter: 2007Q3

REPORT INFORMATION
  Report Type: 
  Country: None (occurrence: None)
  Receive Date: 20070821
  Receipt Date: 20070702
  Transmission Date: 20080115
  Serious: Yes (Other)
  Sender: FDA-Public Use
  Company Number: FR-SANOFI-SYNTHELABO-A01200709098

PATIENT
  Age: 60 Year
  Sex: Female

DRUGS (2)
  1. KERLONE [Suspect]
     Indication: ATRIAL FIBRILLATION
     Route: 048
  2. KERLONE [Suspect]
     Route: 048

REACTIONS (1)
  - HALLUCINATIONS, MIXED [None]
